FAERS Safety Report 23593463 (Version 1)
Quarter: 2024Q1

REPORT INFORMATION
  Report Type: Spontaneous
  Country: IN (occurrence: IN)
  Receive Date: 20240304
  Receipt Date: 20240304
  Transmission Date: 20240410
  Serious: Yes (Other)
  Sender: FDA-Public Use
  Company Number: IN-GUERBET / CHOKSI BROTHERS PRIVATE-IN-20240001

PATIENT
  Age: 67 Year
  Sex: Male

DRUGS (1)
  1. LIPIODOL [Suspect]
     Active Substance: ETHIODIZED OIL
     Indication: Transcatheter arterial chemoembolisation
     Route: 013

REACTIONS (2)
  - Biliary obstruction [Unknown]
  - Biloma [Unknown]
